FAERS Safety Report 9342298 (Version 1)
Quarter: 2013Q2

REPORT INFORMATION
  Report Type: Spontaneous
  Country: KR (occurrence: None)
  Receive Date: 20130607
  Receipt Date: 20130607
  Transmission Date: 20140414
  Serious: Yes (Hospitalization, Other)
  Sender: FDA-Public Use
  Company Number: IPC201305-000214

PATIENT
  Age: 55 Year
  Sex: Female

DRUGS (7)
  1. METFORMIN HYDROCHLORIDE [Suspect]
  2. AMLODIPINE BESILATE [Suspect]
  3. OLMESARTAN [Suspect]
  4. VITAMIN B COMPLEX [Suspect]
  5. VITAMIN C [Suspect]
  6. FERRIC HYDROXIDE [Suspect]
  7. SITAGLIPTIN [Suspect]

REACTIONS (13)
  - Toxic encephalopathy [None]
  - Dysarthria [None]
  - Protrusion tongue [None]
  - Dyskinesia [None]
  - Myoclonus [None]
  - Haemoglobin decreased [None]
  - Blood urea increased [None]
  - Blood creatinine increased [None]
  - Blood calcium decreased [None]
  - Blood phosphorus decreased [None]
  - Blood glucose increased [None]
  - Glycosylated haemoglobin increased [None]
  - Blood chloride decreased [None]
